FAERS Safety Report 14537005 (Version 1)
Quarter: 2018Q1

REPORT INFORMATION
  Report Type: Spontaneous
  Country: US (occurrence: US)
  Receive Date: 20180215
  Receipt Date: 20180215
  Transmission Date: 20180509
  Serious: Yes (Death, Hospitalization)
  Sender: FDA-Public Use
  Company Number: US-TEVA-2018-US-858724

PATIENT
  Age: 25 Year
  Sex: Female

DRUGS (3)
  1. HYDROXYUREA. [Concomitant]
     Active Substance: HYDROXYUREA
     Indication: SICKLE CELL ANAEMIA
     Route: 065
  2. HYDROMORPHONE [Suspect]
     Active Substance: HYDROMORPHONE
     Dosage: TAKING TABLETS OUT OF HER MOUTH FOR CONSUMPTION DURING TIMES OF EMOTIONAL DISTRESS
     Route: 048
  3. HYDROMORPHONE [Suspect]
     Active Substance: HYDROMORPHONE
     Dosage: HAD TAKEN HYDROMORPHONE PILLS INTRAVENOUSLY
     Route: 042

REACTIONS (18)
  - Respiratory acidosis [Fatal]
  - Cardiac arrest [Fatal]
  - Drug dependence [Fatal]
  - Cardiomegaly [Fatal]
  - Pericardial effusion [Fatal]
  - Ascites [Fatal]
  - Drug abuse [Fatal]
  - Pulmonary congestion [Fatal]
  - Metabolic acidosis [Fatal]
  - Myocardial infarction [Fatal]
  - Lung infiltration [Fatal]
  - Haemolysis [Fatal]
  - Acute myocardial infarction [Fatal]
  - Incorrect route of drug administration [Fatal]
  - Pulmonary embolism [Fatal]
  - Foreign body embolism [Fatal]
  - Pleural effusion [Fatal]
  - Hypersplenism [Fatal]
